FAERS Safety Report 15797740 (Version 1)
Quarter: 2019Q1

REPORT INFORMATION
  Report Type: Spontaneous
  Country: US (occurrence: US)
  Receive Date: 20190108
  Receipt Date: 20190108
  Transmission Date: 20190417
  Serious: No
  Sender: FDA-Public Use
  Company Number: US-ASTRAZENECA-2019SE00962

PATIENT
  Sex: Female

DRUGS (1)
  1. FARXIGA [Suspect]
     Active Substance: DAPAGLIFLOZIN PROPANEDIOL
     Dosage: UNKNOWN DOSE OF FREQUENCY
     Route: 048

REACTIONS (5)
  - Fungal infection [Unknown]
  - Dry skin [Unknown]
  - Pain [Unknown]
  - Skin fissures [Unknown]
  - Haemorrhage [Unknown]
